FAERS Safety Report 5531102-4 (Version None)
Quarter: 2007Q4

REPORT INFORMATION
  Report Type: 
  Country: None (occurrence: None)
  Receive Date: 20071130
  Receipt Date: 20071119
  Transmission Date: 20080405
  Serious: Yes (Other)
  Sender: FDA-Public Use
  Company Number: AU-BOEHRINGER INGELHEIM PHARMACEUTICALS, INC.-2007-DE-06832GD

PATIENT
  Age: 58 Year
  Sex: Female

DRUGS (12)
  1. CLONIDINE [Suspect]
     Indication: TETANUS
     Dosage: 50 MCG/H
     Route: 042
  2. CLONIDINE [Suspect]
     Indication: AUTONOMIC NERVOUS SYSTEM IMBALANCE
     Dosage: 20 MCG/H
     Route: 042
  3. CLONIDINE [Suspect]
  4. MORPHINE [Concomitant]
     Indication: TETANUS
     Dosage: 30 MG/H, ESTABLISHED AT 12 MG/H
  5. MIDAZOLAM HCL [Concomitant]
     Indication: TETANUS
     Dosage: 30 MG/H
  6. MIDAZOLAM HCL [Concomitant]
  7. DIAZEPAM [Concomitant]
     Indication: TETANUS
     Dosage: 20 MG/H
  8. BACLOFEN [Concomitant]
     Indication: TETANUS
  9. VECURONIUM BROMIDE [Concomitant]
     Indication: TETANUS
  10. NORADRENALINE [Concomitant]
  11. PROPOFOL [Concomitant]
     Indication: TETANUS
     Dosage: 90 MG BOLUS UP TO 400 MG
  12. THIOPENTAL SODIUM [Concomitant]
     Indication: TETANUS

REACTIONS (1)
  - DRUG EFFECT DECREASED [None]
